FAERS Safety Report 17353625 (Version 2)
Quarter: 2020Q3

REPORT INFORMATION
  Report Type: Spontaneous
  Country: US (occurrence: US)
  Receive Date: 20200131
  Receipt Date: 20200921
  Transmission Date: 20201102
  Serious: Yes (Other)
  Sender: FDA-Public Use
  Company Number: US-GILEAD-2020-0448749

PATIENT
  Age: 46 Year
  Sex: Male
  Weight: 52.15 kg

DRUGS (60)
  1. SPIRIVA [Concomitant]
     Active Substance: TIOTROPIUM BROMIDE MONOHYDRATE
  2. CEFPODOXIME [Concomitant]
     Active Substance: CEFPODOXIME
  3. CLOPIDOGREL BISULFATE. [Concomitant]
     Active Substance: CLOPIDOGREL BISULFATE
  4. FUROSEMIDE. [Concomitant]
     Active Substance: FUROSEMIDE
  5. LISINOPRIL. [Concomitant]
     Active Substance: LISINOPRIL
  6. MELATONIN [Concomitant]
     Active Substance: MELATONIN
  7. TIOTROPIUM [Concomitant]
     Active Substance: TIOTROPIUM
  8. DIPHENHYDRAMINE. [Concomitant]
     Active Substance: DIPHENHYDRAMINE
  9. EMTRICITABINE [Concomitant]
     Active Substance: EMTRICITABINE
  10. ETHACRYNIC [Concomitant]
  11. FLUCONAZOLE. [Concomitant]
     Active Substance: FLUCONAZOLE
  12. METOPROLOL SUCCINATE. [Concomitant]
     Active Substance: METOPROLOL SUCCINATE
  13. NITROGLYCERIN. [Concomitant]
     Active Substance: NITROGLYCERIN
  14. ONDANSETRON [Concomitant]
     Active Substance: ONDANSETRON
  15. EMTRIVA [Concomitant]
     Active Substance: EMTRICITABINE
  16. ALBUTEROL [SALBUTAMOL] [Concomitant]
     Active Substance: ALBUTEROL
  17. CARVEDILOL. [Concomitant]
     Active Substance: CARVEDILOL
  18. ERGOCALCIFEROL. [Concomitant]
     Active Substance: ERGOCALCIFEROL
  19. RISEDRONATE [Concomitant]
     Active Substance: RISEDRONATE SODIUM
  20. SUSTIVA [Concomitant]
     Active Substance: EFAVIRENZ
  21. SENNOSIDES. [Concomitant]
     Active Substance: SENNOSIDES
  22. STAVUDINE. [Concomitant]
     Active Substance: STAVUDINE
  23. ALENDRONATE [Concomitant]
     Active Substance: ALENDRONATE SODIUM
  24. CALCITROL [CALCITRIOL] [Concomitant]
     Active Substance: CALCITRIOL
  25. LEVOTHYROXINE. [Concomitant]
     Active Substance: LEVOTHYROXINE
  26. MOXIFLOXACIN. [Concomitant]
     Active Substance: MOXIFLOXACIN
  27. TAMSULOSIN [Concomitant]
     Active Substance: TAMSULOSIN
  28. TIVICAY [Concomitant]
     Active Substance: DOLUTEGRAVIR SODIUM
  29. ASPIRIN [ACETYLSALICYLIC ACID] [Concomitant]
     Active Substance: ASPIRIN
  30. SYMBICORT [Concomitant]
     Active Substance: BUDESONIDE\FORMOTEROL FUMARATE DIHYDRATE
  31. ATORVASTATIN [Concomitant]
     Active Substance: ATORVASTATIN
  32. BUDESONIDE. [Concomitant]
     Active Substance: BUDESONIDE
  33. CEPHALEXIN [CEFALEXIN] [Concomitant]
     Active Substance: CEPHALEXIN
  34. GUAIFENESIN. [Concomitant]
     Active Substance: GUAIFENESIN
  35. HYDROCODONE/ACETAMINOPHEN [Concomitant]
     Active Substance: ACETAMINOPHEN\HYDROCODONE
  36. NICOTINE. [Concomitant]
     Active Substance: NICOTINE
  37. SULFAMETHOXAZOLE [Concomitant]
     Active Substance: SULFAMETHOXAZOLE
  38. AZITHROMYCIN ANHYDROUS. [Concomitant]
     Active Substance: AZITHROMYCIN ANHYDROUS
  39. CEFUROXIME. [Concomitant]
     Active Substance: CEFUROXIME
  40. LEVOFLOXACIN. [Concomitant]
     Active Substance: LEVOFLOXACIN
  41. MIRTAZAPINE. [Concomitant]
     Active Substance: MIRTAZAPINE
  42. PRAVASTATIN. [Concomitant]
     Active Substance: PRAVASTATIN
  43. RILPIVIRINE [Concomitant]
     Active Substance: RILPIVIRINE
  44. ATRIPLA [Suspect]
     Active Substance: EFAVIRENZ\EMTRICITABINE\TENOFOVIR DISOPROXIL FUMARATE
     Indication: HIV INFECTION
     Dosage: UNK
     Route: 048
     Dates: start: 2010, end: 201005
  45. COMPLERA [Suspect]
     Active Substance: EMTRICITABINE\RILPIVIRINE HYDROCHLORIDE\TENOFOVIR DISOPROXIL FUMARATE
     Indication: HIV INFECTION
     Dosage: UNK
     Route: 048
     Dates: start: 20111011, end: 2012
  46. TRUVADA [Suspect]
     Active Substance: EMTRICITABINE\TENOFOVIR DISOPROXIL FUMARATE
     Indication: HIV INFECTION
     Dosage: UNK
     Route: 065
     Dates: start: 2012, end: 2013
  47. VITAMIN D3 [Concomitant]
     Active Substance: CHOLECALCIFEROL
  48. AMLODIPINE [AMLODIPINE BESILATE] [Concomitant]
     Active Substance: AMLODIPINE BESYLATE
  49. AMOXICILLIN. [Concomitant]
     Active Substance: AMOXICILLIN
  50. ATAZANAVIR. [Concomitant]
     Active Substance: ATAZANAVIR
  51. LAMIVUDINE. [Concomitant]
     Active Substance: LAMIVUDINE
  52. OSELTAMIVIR [Concomitant]
     Active Substance: OSELTAMIVIR
  53. VIREAD [Suspect]
     Active Substance: TENOFOVIR DISOPROXIL FUMARATE
     Indication: HIV INFECTION
     Dosage: UNK
     Route: 048
  54. CALCIUM [Concomitant]
     Active Substance: CALCIUM
  55. POTASSIUM [Concomitant]
     Active Substance: POTASSIUM
  56. PREDNISONE. [Concomitant]
     Active Substance: PREDNISONE
  57. BENZONATATE. [Concomitant]
     Active Substance: BENZONATATE
  58. BUMETANIDE. [Concomitant]
     Active Substance: BUMETANIDE
  59. DOXYCYCLINE. [Concomitant]
     Active Substance: DOXYCYCLINE
  60. OMEPRAZOLE. [Concomitant]
     Active Substance: OMEPRAZOLE

REACTIONS (9)
  - Bone density decreased [Unknown]
  - Clavicle fracture [Unknown]
  - Pain [Not Recovered/Not Resolved]
  - Anhedonia [Not Recovered/Not Resolved]
  - Osteoporosis [Not Recovered/Not Resolved]
  - Emotional distress [Not Recovered/Not Resolved]
  - Anxiety [Not Recovered/Not Resolved]
  - Economic problem [Not Recovered/Not Resolved]
  - Chronic kidney disease [Unknown]

NARRATIVE: CASE EVENT DATE: 201206
